FAERS Safety Report 11653314 (Version 1)
Quarter: 2015Q4

REPORT INFORMATION
  Report Type: Spontaneous
  Country: PT (occurrence: PT)
  Receive Date: 20151022
  Receipt Date: 20151022
  Transmission Date: 20160304
  Serious: Yes (Life-Threatening, Hospitalization)
  Sender: FDA-Public Use
  Company Number: PT-ASTRAZENECA-2015SE99952

PATIENT
  Age: 23019 Day
  Sex: Male

DRUGS (6)
  1. PERINDOPRIL [Concomitant]
     Active Substance: PERINDOPRIL
     Indication: HYPERTENSION
     Route: 048
  2. BRILIQUE [Suspect]
     Active Substance: TICAGRELOR
     Indication: PLATELET AGGREGATION INHIBITION
     Route: 048
     Dates: start: 2014
  3. DAIVOBET [Concomitant]
     Active Substance: BETAMETHASONE DIPROPIONATE\CALCIPOTRIENE
     Route: 048
  4. HIDROXIZINA [Concomitant]
     Route: 048
  5. CICLOSPORINA [Interacting]
     Active Substance: CYCLOSPORINE
     Indication: PSORIASIS
     Route: 048
     Dates: start: 20150608
  6. AAS [Concomitant]
     Active Substance: ASPIRIN
     Route: 048
     Dates: start: 2014

REACTIONS (4)
  - Acute pulmonary oedema [Recovering/Resolving]
  - Hypertensive crisis [Recovering/Resolving]
  - Cardiac failure [Recovering/Resolving]
  - Drug interaction [Unknown]

NARRATIVE: CASE EVENT DATE: 20150627
